FAERS Safety Report 17186385 (Version 1)
Quarter: 2019Q4

REPORT INFORMATION
  Report Type: Spontaneous
  Country: US (occurrence: US)
  Receive Date: 20191220
  Receipt Date: 20191220
  Transmission Date: 20200122
  Serious: No
  Sender: FDA-Public Use
  Company Number: US-PFIZER INC-2019546233

PATIENT
  Age: 40 Year
  Sex: Male
  Weight: 109.7 kg

DRUGS (7)
  1. XANAX [Suspect]
     Active Substance: ALPRAZOLAM
     Indication: SPINAL DISORDER
  2. XANAX [Suspect]
     Active Substance: ALPRAZOLAM
     Indication: ANXIETY
  3. XANAX [Suspect]
     Active Substance: ALPRAZOLAM
     Indication: ASTHMA
  4. XANAX [Suspect]
     Active Substance: ALPRAZOLAM
     Indication: SLEEP APNOEA SYNDROME
  5. XANAX [Suspect]
     Active Substance: ALPRAZOLAM
     Indication: ASTHMA
     Dosage: 1 DF, AS NEEDED (FOUR TIMES A DAY)
  6. XANAX [Suspect]
     Active Substance: ALPRAZOLAM
     Indication: DYSPNOEA
  7. XANAX [Suspect]
     Active Substance: ALPRAZOLAM
     Indication: PANIC ATTACK

REACTIONS (1)
  - Pain [Unknown]
